FAERS Safety Report 4470859-0 (Version None)
Quarter: 2004Q4

REPORT INFORMATION
  Report Type: 
  Country: None (occurrence: None)
  Receive Date: 20041011
  Receipt Date: 20040930
  Transmission Date: 20050328
  Serious: Yes (Other)
  Sender: FDA-Public Use
  Company Number: JP-JNJFOC-20040800688

PATIENT
  Age: 47 Year
  Sex: Female

DRUGS (9)
  1. LEVOFLOXACIN [Suspect]
     Route: 049
  2. LEVOFLOXACIN [Suspect]
     Route: 049
  3. LEVOFLOXACIN [Suspect]
     Route: 049
  4. LEVOFLOXACIN [Suspect]
     Route: 049
  5. LEVOFLOXACIN [Suspect]
     Route: 049
  6. LEVOFLOXACIN [Suspect]
     Indication: UPPER RESPIRATORY TRACT INFECTION
     Route: 049
  7. PROZAC [Concomitant]
     Indication: ANXIETY
  8. CELESTAMINE TAB [Concomitant]
     Route: 049
  9. CELESTAMINE TAB [Concomitant]
     Indication: RHINITIS
     Route: 049

REACTIONS (2)
  - POSTMENOPAUSAL HAEMORRHAGE [None]
  - UPPER RESPIRATORY TRACT INFECTION [None]
